FAERS Safety Report 5007710-6 (Version None)
Quarter: 2006Q2

REPORT INFORMATION
  Report Type: 
  Country: None (occurrence: None)
  Receive Date: 20060522
  Receipt Date: 20060511
  Transmission Date: 20061013
  Serious: Yes (Other)
  Sender: FDA-Public Use
  Company Number: US-BRACCO-BDI-008240

PATIENT
  Sex: Female

DRUGS (2)
  1. MULTIHANCE [Suspect]
     Indication: PAIN
     Route: 042
     Dates: start: 20060505, end: 20060505
  2. MULTIHANCE [Suspect]
     Route: 042
     Dates: start: 20060505, end: 20060505

REACTIONS (2)
  - CELLULITIS [None]
  - HYPERSENSITIVITY [None]
